FAERS Safety Report 8966110 (Version 1)
Quarter: 2012Q4

REPORT INFORMATION
  Report Type: 
  Country: US (occurrence: US)
  Receive Date: 20121217
  Receipt Date: 20121217
  Transmission Date: 20130627
  Serious: No
  Sender: FDA-Public Use
  Company Number: US-PFIZER INC-2012316239

PATIENT
  Age: 8 Year
  Sex: Male
  Weight: 22.22 kg

DRUGS (2)
  1. SERTRALINE HCL [Suspect]
     Indication: OBSESSIVE-COMPULSIVE DISORDER
     Dosage: 6 mg, 2x/day
     Route: 048
     Dates: start: 201205, end: 20121206
  2. HUMATROPE [Concomitant]
     Dosage: 2.8 mg, 1x/day

REACTIONS (5)
  - Pollakiuria [Recovered/Resolved]
  - Urinary incontinence [Recovered/Resolved]
  - Agitation [Recovered/Resolved]
  - Aggression [Recovered/Resolved]
  - Insomnia [Not Recovered/Not Resolved]
